FAERS Safety Report 18383463 (Version 4)
Quarter: 2021Q1

REPORT INFORMATION
  Report Type: Report from Study
  Country: BR (occurrence: BR)
  Receive Date: 20201014
  Receipt Date: 20210304
  Transmission Date: 20210419
  Serious: Yes (Hospitalization, Other)
  Sender: FDA-Public Use
  Company Number: NVSC2020BR078873

PATIENT
  Age: 58 Year
  Sex: Female
  Weight: 81 kg

DRUGS (30)
  1. COSENTYX [Suspect]
     Active Substance: SECUKINUMAB
     Dosage: UNK
     Route: 065
     Dates: start: 20200617
  2. BESTIN [Concomitant]
     Indication: DIZZINESS
     Dosage: 1 DF, QD
     Route: 048
  3. COSENTYX [Suspect]
     Active Substance: SECUKINUMAB
     Indication: ANKYLOSING SPONDYLITIS
     Dosage: 300 MG, QW (150MG, 2 AMPOULES)
     Route: 065
     Dates: start: 20191127
  4. METHOTREXATE SODIUM. [Concomitant]
     Active Substance: METHOTREXATE SODIUM
     Indication: PSORIATIC ARTHROPATHY
     Dosage: 5 DF, QW
     Route: 048
  5. COSENTYX [Suspect]
     Active Substance: SECUKINUMAB
     Indication: PSORIATIC ARTHROPATHY
     Dosage: 300 MG, QW (150MG, 2 AMPOULES)
     Route: 058
     Dates: start: 20191120
  6. COSENTYX [Suspect]
     Active Substance: SECUKINUMAB
     Dosage: UNK (2 AMPOULES)
     Route: 058
     Dates: start: 20200117
  7. COSENTYX [Suspect]
     Active Substance: SECUKINUMAB
     Dosage: UNK
     Route: 065
     Dates: start: 20200517
  8. COSENTYX [Suspect]
     Active Substance: SECUKINUMAB
     Dosage: UNK
     Route: 065
     Dates: start: 20200917
  9. DULOXETINE. [Suspect]
     Active Substance: DULOXETINE
     Indication: ANTIDEPRESSANT THERAPY
     Dosage: 1 DF, QD
     Route: 048
  10. ALPRAZOLAM. [Suspect]
     Active Substance: ALPRAZOLAM
     Indication: INSOMNIA
     Dosage: 1 DF, QD
     Route: 048
  11. METHOTREXATE. [Concomitant]
     Active Substance: METHOTREXATE
     Indication: PSORIASIS
     Dosage: UNK
     Route: 065
  12. PRAMIPEXOLE. [Concomitant]
     Active Substance: PRAMIPEXOLE
     Indication: PARKINSON^S DISEASE
     Dosage: 1 DF, QD
     Route: 048
     Dates: start: 2007
  13. BESTIN [Concomitant]
     Dosage: 1 DF, QD (1 TABLET OF 16 MG)
     Route: 048
  14. COSENTYX [Suspect]
     Active Substance: SECUKINUMAB
     Dosage: UNK (2 AMPOULES)
     Route: 058
     Dates: start: 20191211
  15. COSENTYX [Suspect]
     Active Substance: SECUKINUMAB
     Dosage: UNK
     Route: 065
     Dates: start: 20200718
  16. COSENTYX [Suspect]
     Active Substance: SECUKINUMAB
     Dosage: UNK
     Route: 065
     Dates: start: 20200817
  17. COSENTYX [Suspect]
     Active Substance: SECUKINUMAB
     Dosage: 300 MG, QW (150MG, 2 AMPOULES)
     Route: 065
     Dates: start: 20191204
  18. COSENTYX [Suspect]
     Active Substance: SECUKINUMAB
     Dosage: UNK (2 AMPOULES)
     Route: 058
     Dates: start: 20191218
  19. COSENTYX [Suspect]
     Active Substance: SECUKINUMAB
     Dosage: UNK
     Route: 065
     Dates: start: 20200417
  20. PREGABALIN. [Concomitant]
     Active Substance: PREGABALIN
     Indication: NEURALGIA
     Dosage: 2 DF, QD
     Route: 048
  21. QUETIAPINE. [Concomitant]
     Active Substance: QUETIAPINE
     Indication: FIBROMYALGIA
     Dosage: 1 DF, QD
     Route: 048
  22. ATORVASTATIN [Concomitant]
     Active Substance: ATORVASTATIN
     Indication: BLOOD CHOLESTEROL INCREASED
     Dosage: 1 DF, QD
     Route: 048
     Dates: start: 20210105
  23. COSENTYX [Suspect]
     Active Substance: SECUKINUMAB
     Dosage: UNK (2 AMPOULES)
     Route: 058
     Dates: start: 20200317
  24. COSENTYX [Suspect]
     Active Substance: SECUKINUMAB
     Dosage: UNK
     Route: 058
     Dates: start: 20201118
  25. VITAMAN [Concomitant]
     Active Substance: MINERALS\VITAMINS
     Indication: SUPPLEMENTATION THERAPY
     Dosage: 1 DF, QD
     Route: 048
  26. COSENTYX [Suspect]
     Active Substance: SECUKINUMAB
     Dosage: UNK (2 AMPOULES)
     Route: 058
     Dates: start: 20200217
  27. COSENTYX [Suspect]
     Active Substance: SECUKINUMAB
     Dosage: 300 MG, QMO
     Route: 065
     Dates: start: 2020, end: 20201118
  28. FOLIC ACID. [Concomitant]
     Active Substance: FOLIC ACID
     Indication: PROPHYLAXIS
     Dosage: 1 DF, QW
     Route: 048
  29. ESOMEPRAZOLE. [Concomitant]
     Active Substance: ESOMEPRAZOLE MAGNESIUM
     Indication: REFLUX NEPHROPATHY
     Dosage: 1 DF, QD
     Route: 048
  30. COSENTYX [Suspect]
     Active Substance: SECUKINUMAB
     Dosage: UNK (150MG/ML 2 PENS)
     Route: 058
     Dates: start: 20201017

REACTIONS (24)
  - Pulmonary fibrosis [Unknown]
  - Rhinitis [Not Recovered/Not Resolved]
  - Metabolic disorder [Not Recovered/Not Resolved]
  - Thirst [Not Recovered/Not Resolved]
  - Swelling [Unknown]
  - Skin wrinkling [Unknown]
  - Fibromyalgia [Unknown]
  - Blood cholesterol increased [Not Recovered/Not Resolved]
  - Headache [Unknown]
  - Arthritis [Not Recovered/Not Resolved]
  - Joint range of motion decreased [Unknown]
  - Decreased immune responsiveness [Unknown]
  - Pruritus [Not Recovered/Not Resolved]
  - Aphthous ulcer [Not Recovered/Not Resolved]
  - Fatigue [Not Recovered/Not Resolved]
  - Nausea [Unknown]
  - Psoriasis [Recovered/Resolved]
  - Spinal disorder [Unknown]
  - Arthralgia [Not Recovered/Not Resolved]
  - Pain [Unknown]
  - Alopecia [Not Recovered/Not Resolved]
  - Abdominal discomfort [Not Recovered/Not Resolved]
  - Discomfort [Unknown]
  - Paraesthesia [Unknown]

NARRATIVE: CASE EVENT DATE: 201911
